FAERS Safety Report 6935195-9 (Version None)
Quarter: 2010Q3

REPORT INFORMATION
  Report Type: 
  Country: None (occurrence: None)
  Receive Date: 20100822
  Receipt Date: 20100817
  Transmission Date: 20110219
  Serious: Yes (Death)
  Sender: FDA-Public Use
  Company Number: PHHY2010US53476

PATIENT
  Age: 69 Year
  Sex: Female

DRUGS (1)
  1. FORADIL [Suspect]

REACTIONS (2)
  - DEATH [None]
  - RESPIRATORY ARREST [None]
